FAERS Safety Report 8544134-9 (Version None)
Quarter: 2012Q3

REPORT INFORMATION
  Report Type: 
  Country: None (occurrence: None)
  Receive Date: 20120727
  Receipt Date: 20120719
  Transmission Date: 20120928
  Serious: Yes (Other)
  Sender: FDA-Public Use
  Company Number: CA-JNJFOC-20120711479

PATIENT
  Sex: Male
  Weight: 105.4 kg

DRUGS (3)
  1. REMICADE [Suspect]
     Indication: RHEUMATOID ARTHRITIS
     Route: 042
     Dates: start: 20090805
  2. OMEPRAZOLE [Concomitant]
     Route: 065
  3. METHOTREXATE [Concomitant]
     Route: 065

REACTIONS (2)
  - LIMB OPERATION [None]
  - POST PROCEDURAL INFECTION [None]
